FAERS Safety Report 16305544 (Version 1)
Quarter: 2019Q2

REPORT INFORMATION
  Report Type: Spontaneous
  Country: US (occurrence: US)
  Receive Date: 20190513
  Receipt Date: 20190513
  Transmission Date: 20190711
  Serious: No
  Sender: FDA-Public Use
  Company Number: US-009507513-1905USA004007

PATIENT
  Sex: Female

DRUGS (5)
  1. REMERON [Suspect]
     Active Substance: MIRTAZAPINE
  2. AMBIEN [Suspect]
     Active Substance: ZOLPIDEM TARTRATE
  3. AMBIEN CR [Suspect]
     Active Substance: ZOLPIDEM TARTRATE
  4. SEROQUEL [Suspect]
     Active Substance: QUETIAPINE FUMARATE
  5. QUETIAPINE FUMARATE. [Suspect]
     Active Substance: QUETIAPINE FUMARATE

REACTIONS (2)
  - Pain [Unknown]
  - Insomnia [Unknown]
